FAERS Safety Report 8303300-8 (Version None)
Quarter: 2012Q2

REPORT INFORMATION
  Report Type: 
  Country: None (occurrence: None)
  Receive Date: 20120423
  Receipt Date: 20120416
  Transmission Date: 20120825
  Serious: No
  Sender: FDA-Public Use
  Company Number: US-BIOGENIDEC-2012BI013325

PATIENT
  Age: 42 Year
  Sex: Female

DRUGS (1)
  1. TYSABRI [Suspect]
     Indication: MULTIPLE SCLEROSIS
     Route: 042
     Dates: start: 20110516

REACTIONS (7)
  - MUSCULOSKELETAL DISORDER [None]
  - PANIC ATTACK [None]
  - MOBILITY DECREASED [None]
  - FALL [None]
  - DEPRESSION [None]
  - MULTIPLE SCLEROSIS [None]
  - LIGAMENT SPRAIN [None]
